FAERS Safety Report 14355635 (Version 1)
Quarter: 2018Q1

REPORT INFORMATION
  Report Type: Spontaneous
  Country: AE (occurrence: AE)
  Receive Date: 20180105
  Receipt Date: 20180105
  Transmission Date: 20180509
  Serious: Yes (Other)
  Sender: FDA-Public Use
  Company Number: AE-IPSEN BIOPHARMACEUTICALS, INC.-2017-16446

PATIENT
  Age: 46 Year
  Sex: Female

DRUGS (2)
  1. BOTULINUM TOXIN TYPE A [Suspect]
     Active Substance: BOTULINUM TOXIN TYPE A
     Indication: OBESITY
     Dosage: NOT REPORTED
     Route: 065
  2. BOTULINUM TOXIN TYPE A [Suspect]
     Active Substance: BOTULINUM TOXIN TYPE A
     Indication: OFF LABEL USE

REACTIONS (7)
  - Gastrointestinal oedema [Unknown]
  - Gastrointestinal necrosis [Unknown]
  - Gastrointestinal perforation [Unknown]
  - Septic shock [Unknown]
  - Obstruction gastric [Unknown]
  - Off label use [Unknown]
  - Gastritis haemorrhagic [Unknown]
